FAERS Safety Report 6014525-9 (Version None)
Quarter: 2008Q4

REPORT INFORMATION
  Report Type: 
  Country: None (occurrence: None)
  Receive Date: 20081219
  Receipt Date: 20080801
  Transmission Date: 20090506
  Serious: No
  Sender: FDA-Public Use
  Company Number: A0740741A

PATIENT
  Age: 85 Year
  Sex: Male

DRUGS (11)
  1. AVODART [Suspect]
     Indication: BENIGN PROSTATIC HYPERPLASIA
     Dosage: .5MG PER DAY
     Route: 048
  2. LOVASTATIN [Concomitant]
  3. METOPROLOL TARTRATE [Concomitant]
  4. COENZYME Q10 [Concomitant]
  5. VITAMIN E [Concomitant]
  6. MAGNESIUM SULFATE [Concomitant]
  7. VITAMIN B6 [Concomitant]
  8. CENTRUM MULTIVITAMIN [Concomitant]
  9. FUROSEMIDE [Concomitant]
  10. FOSAMAX [Concomitant]
  11. ALPRAZOLAM [Concomitant]

REACTIONS (1)
  - CONSTIPATION [None]
